FAERS Safety Report 9223330 (Version 2)
Quarter: 2013Q2

REPORT INFORMATION
  Report Type: Spontaneous
  Country: US (occurrence: US)
  Receive Date: 20130410
  Receipt Date: 20130418
  Transmission Date: 20140414
  Serious: Yes (Other)
  Sender: FDA-Public Use
  Company Number: US-GILEAD-2013-0073015

PATIENT
  Sex: Female

DRUGS (4)
  1. LETAIRIS [Suspect]
     Indication: PULMONARY HYPERTENSION
     Dosage: 10 MG, QD
     Route: 048
     Dates: start: 20101126
  2. LETAIRIS [Suspect]
     Indication: SCLERODERMA
  3. VENTAVIS [Concomitant]
  4. ADCIRCA [Concomitant]

REACTIONS (1)
  - Pneumonia [Unknown]
